FAERS Safety Report 11002598 (Version 1)
Quarter: 2015Q2

REPORT INFORMATION
  Report Type: Spontaneous
  Country: US (occurrence: US)
  Receive Date: 20150408
  Receipt Date: 20150408
  Transmission Date: 20150821
  Serious: No
  Sender: FDA-Public Use
  Company Number: US-GLAXOSMITHKLINE-US2015046291

PATIENT
  Age: 76 Year
  Sex: Female

DRUGS (1)
  1. ANORO ELLIPTA [Suspect]
     Active Substance: UMECLIDINIUM BROMIDE\VILANTEROL TRIFENATATE
     Indication: CHRONIC OBSTRUCTIVE PULMONARY DISEASE
     Dosage: 1 PUFF(S), QD
     Route: 055
     Dates: start: 20150301

REACTIONS (7)
  - Dyspnoea [Unknown]
  - Eye discharge [Unknown]
  - Eye infection [Recovering/Resolving]
  - Drug ineffective [Unknown]
  - Intentional product use issue [Unknown]
  - Sciatica [Unknown]
  - Back pain [Unknown]

NARRATIVE: CASE EVENT DATE: 20150317
